FAERS Safety Report 9504087 (Version 3)
Quarter: 2013Q4

REPORT INFORMATION
  Report Type: Spontaneous
  Country: US (occurrence: US)
  Receive Date: 20130906
  Receipt Date: 20131219
  Transmission Date: 20140711
  Serious: Yes (Hospitalization)
  Sender: FDA-Public Use
  Company Number: US-MYLANLABS-2013S1019377

PATIENT
  Age: 82 Year
  Sex: Male
  Weight: 79.83 kg

DRUGS (9)
  1. VALACYCLOVIR TABLETS [Suspect]
     Indication: HERPES ZOSTER
     Route: 048
     Dates: start: 20130529, end: 20130531
  2. OMEPRAZOLE [Concomitant]
     Route: 048
  3. BABY ASPIRIN [Concomitant]
     Route: 048
  4. CLOPIDOGREL [Concomitant]
     Route: 048
  5. FINASTERIDE [Concomitant]
     Route: 048
  6. AMIODARONE [Concomitant]
     Route: 048
  7. LEVOTHYROXINE [Concomitant]
     Route: 048
  8. MIDODRINE HYDROCHLORIDE [Concomitant]
     Route: 048
  9. CARVEDILOL [Concomitant]
     Route: 048

REACTIONS (9)
  - Cholecystectomy [Recovered/Resolved]
  - Gallbladder disorder [Recovered/Resolved]
  - Confusional state [Recovered/Resolved]
  - Dysarthria [Recovered/Resolved]
  - Speech disorder [Recovered/Resolved]
  - Abdominal pain [Recovered/Resolved]
  - Agitation [Recovered/Resolved]
  - Rash [Recovered/Resolved]
  - Swelling [Recovered/Resolved]
